FAERS Safety Report 6331053-1 (Version None)
Quarter: 2009Q3

REPORT INFORMATION
  Report Type: 
  Country: None (occurrence: None)
  Receive Date: 20090827
  Receipt Date: 20090817
  Transmission Date: 20100115
  Serious: Yes (Hospitalization)
  Sender: FDA-Public Use
  Company Number: B0521862A

PATIENT
  Sex: Female
  Weight: 50 kg

DRUGS (2)
  1. ARIXTRA [Suspect]
     Indication: DRUG USE FOR UNKNOWN INDICATION
     Dosage: 2.5MG PER DAY
     Route: 058
     Dates: end: 20080423
  2. SUNITINIB [Suspect]
     Dosage: 37.5MG PER DAY
     Route: 048
     Dates: start: 20080418

REACTIONS (4)
  - ANAEMIA [None]
  - DUODENAL ULCER [None]
  - HAEMATEMESIS [None]
  - MELAENA [None]
